FAERS Safety Report 12632845 (Version 2)
Quarter: 2016Q3

REPORT INFORMATION
  Report Type: Spontaneous
  Country: US (occurrence: US)
  Receive Date: 20160808
  Receipt Date: 20160808
  Transmission Date: 20161109
  Serious: Yes (Hospitalization)
  Sender: FDA-Public Use
  Company Number: US-BEH-2015057211

PATIENT
  Sex: Male
  Weight: 62 kg

DRUGS (8)
  1. NYSTATIN. [Concomitant]
     Active Substance: NYSTATIN
  2. TAMIFLU [Concomitant]
     Active Substance: OSELTAMIVIR PHOSPHATE
  3. MUPIROCIN. [Concomitant]
     Active Substance: MUPIROCIN
  4. HIZENTRA [Suspect]
     Active Substance: HUMAN IMMUNOGLOBULIN G
     Indication: CONGENITAL HYPOGAMMAGLOBULINAEMIA
     Dosage: 1 GM 5 M VIAL
     Route: 058
     Dates: start: 20130313
  5. PROTOPIC [Concomitant]
     Active Substance: TACROLIMUS
  6. HIZENTRA [Suspect]
     Active Substance: HUMAN IMMUNOGLOBULIN G
     Indication: HYPOGAMMAGLOBULINAEMIA
     Dosage: 2 GM 10 ML VIAL
     Route: 058
     Dates: start: 20130313
  7. DIPHENHYDRAMINE. [Concomitant]
     Active Substance: DIPHENHYDRAMINE
  8. EPIPEN [Concomitant]
     Active Substance: EPINEPHRINE

REACTIONS (3)
  - Gastroenteritis viral [Unknown]
  - Headache [Unknown]
  - Upper respiratory tract infection [Unknown]
